FAERS Safety Report 12179289 (Version 1)
Quarter: 2016Q1

REPORT INFORMATION
  Report Type: Spontaneous
  Country: ID (occurrence: ID)
  Receive Date: 20160314
  Receipt Date: 20160314
  Transmission Date: 20160526
  Serious: Yes (Other)
  Sender: FDA-Public Use
  Company Number: ID-IMPAX LABORATORIES, INC-2016-IPXL-00259

PATIENT
  Age: 19 Year
  Sex: Male

DRUGS (1)
  1. DIVALPROEX SODIUM ER [Suspect]
     Active Substance: DIVALPROEX SODIUM
     Indication: SEIZURE
     Dosage: UNK
     Route: 065

REACTIONS (5)
  - Subarachnoid haemorrhage [Recovered/Resolved]
  - Mental disorder [Recovered/Resolved]
  - Cerebral haemorrhage [Recovered/Resolved]
  - Brain oedema [Recovered/Resolved]
  - Acute hepatic failure [Recovered/Resolved]
